FAERS Safety Report 18160893 (Version 2)
Quarter: 2020Q3

REPORT INFORMATION
  Report Type: Spontaneous
  Country: US (occurrence: US)
  Receive Date: 20200818
  Receipt Date: 20200821
  Transmission Date: 20201103
  Serious: Yes (Other)
  Sender: FDA-Public Use
  Company Number: US-BAUSCH-BL-2020-023072

PATIENT
  Sex: Female

DRUGS (1)
  1. LUMIFY [Suspect]
     Active Substance: BRIMONIDINE TARTRATE
     Indication: PRODUCT USED FOR UNKNOWN INDICATION
     Route: 047

REACTIONS (7)
  - Vision blurred [Unknown]
  - Therapeutic product effect incomplete [Unknown]
  - Cataract [Unknown]
  - Ocular discomfort [Unknown]
  - Headache [Unknown]
  - Feeling abnormal [Unknown]
  - Eye irritation [Unknown]
